FAERS Safety Report 9729789 (Version 1)
Quarter: 2013Q4

REPORT INFORMATION
  Report Type: Spontaneous
  Country: US (occurrence: US)
  Receive Date: 20131204
  Receipt Date: 20131204
  Transmission Date: 20140711
  Serious: No
  Sender: FDA-Public Use
  Company Number: US-GILEAD-2009-0022544

PATIENT
  Age: 71 Year
  Sex: Female

DRUGS (15)
  1. LETAIRIS [Suspect]
     Indication: PULMONARY ARTERIAL HYPERTENSION
     Route: 048
     Dates: start: 20090508, end: 20090512
  2. COUMADIN [Concomitant]
  3. SPIRONOLACTONE [Concomitant]
  4. SINGULAIR [Concomitant]
  5. ADVAIR [Concomitant]
  6. SPIRIVA [Concomitant]
  7. NASONEX [Concomitant]
  8. N-ACETYL-L-CYSTEINE [Concomitant]
  9. AZATHIOPRINE [Concomitant]
  10. BENICAR [Concomitant]
  11. VIACTIV [Concomitant]
  12. CALCIUM [Concomitant]
  13. VITAMIN E [Concomitant]
  14. MULTI-DAY [Concomitant]
  15. ACTONEL [Concomitant]

REACTIONS (1)
  - Oedema peripheral [Recovered/Resolved]
